FAERS Safety Report 8388682-3 (Version None)
Quarter: 2012Q2

REPORT INFORMATION
  Report Type: 
  Country: None (occurrence: None)
  Receive Date: 20120525
  Receipt Date: 20120327
  Transmission Date: 20120825
  Serious: No
  Sender: FDA-Public Use
  Company Number: US-ASTRAZENECA-2012SE20800

PATIENT
  Age: 50 Year
  Sex: Female

DRUGS (3)
  1. PULMICORT [Suspect]
     Route: 055
  2. NEXIUM [Suspect]
     Route: 048
  3. CRESTOR [Suspect]
     Route: 048

REACTIONS (5)
  - MALAISE [None]
  - RESPIRATORY DISORDER [None]
  - NASOPHARYNGITIS [None]
  - OROPHARYNGEAL PAIN [None]
  - PYREXIA [None]
